FAERS Safety Report 8062289-X (Version None)
Quarter: 2012Q1

REPORT INFORMATION
  Report Type: 
  Country: None (occurrence: None)
  Receive Date: 20120123
  Receipt Date: 20120118
  Transmission Date: 20120608
  Serious: No
  Sender: FDA-Public Use
  Company Number: US-PFIZER INC-2012014853

PATIENT
  Sex: Female
  Weight: 81 kg

DRUGS (1)
  1. PROCARDIA XL [Suspect]
     Indication: MYOCARDIAL INFARCTION
     Dosage: 60 MG, 2X/DAY
     Route: 048
     Dates: start: 20100101

REACTIONS (1)
  - HYPERTENSION [None]
